FAERS Safety Report 23381777 (Version 3)
Quarter: 2024Q1

REPORT INFORMATION
  Report Type: Spontaneous
  Country: US (occurrence: US)
  Receive Date: 20240109
  Receipt Date: 20240216
  Transmission Date: 20240410
  Serious: No
  Sender: FDA-Public Use
  Company Number: US-PFIZER INC-202300448259

PATIENT
  Age: 4 Year
  Sex: Female
  Weight: 16.937 kg

DRUGS (2)
  1. GENOTROPIN [Suspect]
     Active Substance: SOMATROPIN
     Indication: Turner^s syndrome
     Dosage: 0.1 MG, DAILY (ONCE DAILY, EACH NIGHT DAILY)
     Dates: start: 2020
  2. TRAZODONE [Concomitant]
     Active Substance: TRAZODONE HYDROCHLORIDE
     Dosage: 50 MG

REACTIONS (4)
  - Drug dose omission by device [Unknown]
  - Device breakage [Unknown]
  - Device use error [Unknown]
  - Expired device used [Unknown]
